FAERS Safety Report 6648016-9 (Version None)
Quarter: 2010Q1

REPORT INFORMATION
  Report Type: 
  Country: None (occurrence: None)
  Receive Date: 20100324
  Receipt Date: 20100312
  Transmission Date: 20100710
  Serious: Yes (Disabling, Other)
  Sender: FDA-Public Use
  Company Number: US-ELI_LILLY_AND_COMPANY-US201001005887

PATIENT
  Sex: Female

DRUGS (5)
  1. BYETTA [Suspect]
     Indication: TYPE 2 DIABETES MELLITUS
     Dosage: 5 UG, 2/D
     Dates: start: 20080101
  2. BYETTA [Suspect]
     Dosage: 10 UG, 2/D
  3. BYETTA [Suspect]
     Dosage: 10 UG, 2/D
     Dates: end: 20090401
  4. NAPROSYN /00256202/ [Concomitant]
     Indication: ARTHRALGIA
     Dosage: UNK, AS NEEDED
  5. LIPITOR [Concomitant]
     Indication: BLOOD CHOLESTEROL INCREASED

REACTIONS (3)
  - BLOOD GLUCOSE FLUCTUATION [None]
  - DYSSTASIA [None]
  - OSTEOARTHRITIS [None]
